FAERS Safety Report 16011762 (Version 2)
Quarter: 2020Q2

REPORT INFORMATION
  Report Type: Spontaneous
  Country: DE (occurrence: DE)
  Receive Date: 20190227
  Receipt Date: 20200629
  Transmission Date: 20200713
  Serious: Yes (Hospitalization)
  Sender: FDA-Public Use
  Company Number: PHHY2018DE120128

PATIENT
  Age: 49 Year
  Sex: Male

DRUGS (2)
  1. INTERFERON BETA-1B [Suspect]
     Active Substance: INTERFERON BETA-1B
     Indication: MULTIPLE SCLEROSIS
     Dosage: 250 ?G, QOD
     Route: 058
     Dates: start: 20131116
  2. INTERFERON BETA NOS [Suspect]
     Active Substance: INTERFERON BETA
     Indication: PRODUCT USED FOR UNKNOWN INDICATION
     Dosage: UNK
     Route: 065

REACTIONS (9)
  - Enteritis [Recovered/Resolved]
  - Injection site induration [Unknown]
  - Injection site reaction [Not Recovered/Not Resolved]
  - Injection site mass [Unknown]
  - Colitis [Recovered/Resolved]
  - Injection site pain [Recovering/Resolving]
  - Gait inability [Unknown]
  - Device issue [Unknown]
  - Pallor [Not Recovered/Not Resolved]

NARRATIVE: CASE EVENT DATE: 20181210
